FAERS Safety Report 23337271 (Version 6)
Quarter: 2025Q1

REPORT INFORMATION
  Report Type: Report from Study
  Country: US (occurrence: US)
  Receive Date: 20231226
  Receipt Date: 20250320
  Transmission Date: 20250409
  Serious: Yes (Disabling, Other)
  Sender: AMGEN
  Company Number: US-HORIZON THERAPEUTICS-HZN-2023-005802

PATIENT
  Age: 58 Year
  Sex: Male

DRUGS (28)
  1. TEPEZZA [Suspect]
     Active Substance: TEPROTUMUMAB-TRBW
     Indication: Graves^ disease
     Route: 042
     Dates: start: 20230119
  2. TEPEZZA [Suspect]
     Active Substance: TEPROTUMUMAB-TRBW
     Indication: Endocrine ophthalmopathy
     Route: 042
     Dates: start: 20230411
  3. TEPEZZA [Suspect]
     Active Substance: TEPROTUMUMAB-TRBW
     Dosage: 1910 MILLIGRAM, Q3WK
     Route: 042
     Dates: start: 20230428
  4. TEPEZZA [Suspect]
     Active Substance: TEPROTUMUMAB-TRBW
     Dosage: 1910 MILLIGRAM, Q3WK
     Route: 042
     Dates: start: 20230523
  5. TEPEZZA [Suspect]
     Active Substance: TEPROTUMUMAB-TRBW
     Dosage: 1910 MILLIGRAM, Q3WK
     Route: 042
     Dates: start: 20230610
  6. TEPEZZA [Suspect]
     Active Substance: TEPROTUMUMAB-TRBW
     Route: 042
     Dates: start: 20230613
  7. TEPEZZA [Suspect]
     Active Substance: TEPROTUMUMAB-TRBW
     Route: 042
     Dates: start: 20230706
  8. PREDNISONE [Suspect]
     Active Substance: PREDNISONE
     Indication: Eye inflammation
     Dosage: 50 MILLIGRAM, QD (HALF TABLET)
     Route: 048
  9. SODIUM CHLORIDE [Concomitant]
     Active Substance: SODIUM CHLORIDE
     Route: 042
     Dates: start: 20230411
  10. SODIUM CHLORIDE [Concomitant]
     Active Substance: SODIUM CHLORIDE
     Route: 065
  11. SODIUM CHLORIDE [Concomitant]
     Active Substance: SODIUM CHLORIDE
     Route: 065
  12. SODIUM CHLORIDE [Concomitant]
     Active Substance: SODIUM CHLORIDE
     Route: 065
  13. STERILE WATER [Concomitant]
     Active Substance: WATER
     Route: 065
  14. STERILE WATER [Concomitant]
     Active Substance: WATER
     Route: 065
  15. STERILE WATER [Concomitant]
     Active Substance: WATER
     Route: 065
  16. STERILE WATER [Concomitant]
     Active Substance: WATER
     Route: 065
  17. DIPHENHYDRAMINE [Concomitant]
     Active Substance: DIPHENHYDRAMINE
     Route: 065
  18. EPINEPHRINE [Concomitant]
     Active Substance: EPINEPHRINE
     Route: 030
  19. LOTEPREDNOL ETABONATE [Concomitant]
     Active Substance: LOTEPREDNOL ETABONATE
     Route: 065
  20. PRED FORTE [Concomitant]
     Active Substance: PREDNISOLONE ACETATE
     Route: 065
  21. METHIMAZOLE [Concomitant]
     Active Substance: METHIMAZOLE
     Indication: Hyperthyroidism
     Dosage: 10 MILLIGRAM, BID
     Route: 048
  22. GABAPENTIN [Concomitant]
     Active Substance: GABAPENTIN
     Route: 065
  23. METHOCARBAMOL [Concomitant]
     Active Substance: METHOCARBAMOL
     Indication: Muscle relaxant therapy
     Dosage: 500 MILLIGRAM, TID
     Route: 065
  24. PREDNISOLONE ACETATE [Concomitant]
     Active Substance: PREDNISOLONE ACETATE
     Route: 065
  25. LOSARTAN [Concomitant]
     Active Substance: LOSARTAN
     Indication: Blood pressure management
     Dosage: 100 MILLIGRAM, QD
     Route: 048
  26. SIMVASTATIN [Concomitant]
     Active Substance: SIMVASTATIN
     Indication: Blood cholesterol increased
     Route: 065
  27. ATENOLOL [Concomitant]
     Active Substance: ATENOLOL
     Indication: Blood pressure management
     Dosage: 50 MILLIGRAM, QD
     Route: 048
  28. CIALIS [Concomitant]
     Active Substance: TADALAFIL
     Indication: Erectile dysfunction
     Route: 048

REACTIONS (11)
  - Deafness neurosensory [Not Recovered/Not Resolved]
  - Physical disability [Unknown]
  - Gastrointestinal haemorrhage [Unknown]
  - Injury [Not Recovered/Not Resolved]
  - Pain [Not Recovered/Not Resolved]
  - Anxiety [Not Recovered/Not Resolved]
  - Emotional distress [Not Recovered/Not Resolved]
  - Economic problem [Not Recovered/Not Resolved]
  - Quality of life decreased [Not Recovered/Not Resolved]
  - Hypertension [Unknown]
  - Haematocrit decreased [Unknown]

NARRATIVE: CASE EVENT DATE: 20210603
